FAERS Safety Report 23493964 (Version 1)
Quarter: 2024Q1

REPORT INFORMATION
  Report Type: Report from Study
  Country: US (occurrence: US)
  Receive Date: 20240207
  Receipt Date: 20240207
  Transmission Date: 20240409
  Serious: Yes (Other)
  Sender: FDA-Public Use
  Company Number: US-INCYTE CORPORATION-2024IN001241

PATIENT

DRUGS (1)
  1. JAKAFI [Suspect]
     Active Substance: RUXOLITINIB
     Indication: Myelofibrosis
     Dosage: 15 MILLIGRAM, BID
     Route: 065
     Dates: start: 202112

REACTIONS (6)
  - Neuropathy peripheral [Recovered/Resolved]
  - Rosacea [Recovered/Resolved]
  - Night sweats [Recovered/Resolved]
  - Laboratory test abnormal [Unknown]
  - Splenomegaly [Unknown]
  - Anaemia [Unknown]
